FAERS Safety Report 5205109-0 (Version None)
Quarter: 2006Q4

REPORT INFORMATION
  Report Type: 
  Country: None (occurrence: None)
  Receive Date: 20061026
  Receipt Date: 20060928
  Transmission Date: 20070319
  Serious: Yes (Other)
  Sender: FDA-Public Use
  Company Number: 2006118845

PATIENT
  Age: 66 Year
  Sex: Female
  Weight: 69.4003 kg

DRUGS (10)
  1. LYRICA [Suspect]
     Indication: POST HERPETIC NEURALGIA
     Dosage: (1 D) ORAL
     Route: 048
     Dates: start: 20060101
  2. SYNTHROID [Concomitant]
  3. TETRACYCLINE [Concomitant]
  4. DILANTIN [Concomitant]
  5. ACIPHEX [Concomitant]
  6. XANAX [Concomitant]
  7. NAPROXEN [Concomitant]
  8. LEXAPRO [Concomitant]
  9. FIORICET [Concomitant]
  10. FENTANYL [Concomitant]

REACTIONS (2)
  - LEUKOPENIA [None]
  - THROMBOCYTOPENIA [None]
